FAERS Safety Report 6203754-7 (Version None)
Quarter: 2009Q2

REPORT INFORMATION
  Report Type: 
  Country: None (occurrence: None)
  Receive Date: 20090526
  Receipt Date: 20090526
  Transmission Date: 20091009
  Serious: Yes (Hospitalization)
  Sender: FDA-Public Use
  Company Number: None

PATIENT
  Age: 74 Year
  Sex: Female
  Weight: 66.6788 kg

DRUGS (2)
  1. PLAVIX [Suspect]
     Indication: CORONARY ARTERIAL STENT INSERTION
     Dosage: ONE TABLET DAILY
     Dates: start: 20090417, end: 20090507
  2. TICLOPIDINE HCL [Suspect]
     Dosage: ONE TABLET TWICE DAILY
     Dates: start: 20090507, end: 20090518

REACTIONS (10)
  - ARTHRALGIA [None]
  - AURICULAR SWELLING [None]
  - BURNING SENSATION [None]
  - GENERALISED ERYTHEMA [None]
  - LIP SWELLING [None]
  - MOVEMENT DISORDER [None]
  - MUSCULOSKELETAL PAIN [None]
  - PAIN [None]
  - URTICARIA [None]
  - VOMITING [None]
